FAERS Safety Report 7971848-1 (Version None)
Quarter: 2011Q4

REPORT INFORMATION
  Report Type: 
  Country: None (occurrence: None)
  Receive Date: 20111122
  Receipt Date: 20110629
  Transmission Date: 20120403
  Serious: No
  Sender: FDA-Public Use
  Company Number: PHHY2011US29393

PATIENT
  Age: 49 Year
  Sex: Female

DRUGS (13)
  1. LIORESAL [Concomitant]
  2. FAMPRIDINE (FAMPRIDINE) [Concomitant]
  3. PROVIGIL (MODEFINIL) [Concomitant]
  4. REMERON [Concomitant]
  5. ACIDOPHILUS (LACTOBACILLUS ACIDOPHILUS) [Concomitant]
  6. NAPROX (NAPROXEN SODIUM) [Concomitant]
  7. GILENYA [Suspect]
     Indication: MULTIPLE SCLEROSIS
     Dosage: 0.5 MG, QD, ORAL
     Route: 048
     Dates: start: 20110405
  8. MIGRAINEX (CAFFEINE, PARACETAMOL, PHENYLEPHRINE HYDROCHLORIDE) [Concomitant]
  9. WELLBUTRIN [Concomitant]
  10. MIGRANAL (DIHYDROERGOTAMINE MESILATE) [Concomitant]
  11. TOPAMAX [Concomitant]
  12. DETROL [Concomitant]
  13. ANAPRAN (NAPROXEN SODIUM) [Concomitant]

REACTIONS (5)
  - URINE COLOUR ABNORMAL [None]
  - PAIN [None]
  - HYPOAESTHESIA [None]
  - CHEST DISCOMFORT [None]
  - PARAESTHESIA [None]
